FAERS Safety Report 19183586 (Version 1)
Quarter: 2021Q2

REPORT INFORMATION
  Report Type: Report from Study
  Country: US (occurrence: US)
  Receive Date: 20210427
  Receipt Date: 20210427
  Transmission Date: 20210717
  Serious: Yes (Other)
  Sender: FDA-Public Use
  Company Number: US-EMD SERONO-9120633

PATIENT
  Age: 72 Year
  Sex: Male

DRUGS (1)
  1. REBIF [Suspect]
     Active Substance: INTERFERON BETA-1A
     Indication: MULTIPLE SCLEROSIS
     Route: 058
     Dates: start: 20130402

REACTIONS (11)
  - Intervertebral disc degeneration [Unknown]
  - Dysstasia [Not Recovered/Not Resolved]
  - Exostosis [Unknown]
  - Gait disturbance [Unknown]
  - Limb injury [Unknown]
  - Nerve compression [Unknown]
  - Hypokinesia [Unknown]
  - Cholecystectomy [Unknown]
  - Fall [Unknown]
  - Memory impairment [Unknown]
  - Joint injury [Recovering/Resolving]

NARRATIVE: CASE EVENT DATE: 2014
